FAERS Safety Report 8050964-2 (Version None)
Quarter: 2012Q1

REPORT INFORMATION
  Report Type: 
  Country: None (occurrence: None)
  Receive Date: 20120117
  Receipt Date: 20120110
  Transmission Date: 20120608
  Serious: Yes (Life-Threatening)
  Sender: FDA-Public Use
  Company Number: PHEH2011US010650

PATIENT
  Sex: Male

DRUGS (3)
  1. TEGRETOL-XR [Suspect]
     Dosage: 2 DF, (TWICE A DAY)
     Route: 048
  2. ELMIRON [Concomitant]
     Dosage: 100 MG, UNK
  3. METOPROLOL TARTRATE [Concomitant]

REACTIONS (3)
  - ABDOMINAL PAIN UPPER [None]
  - NEUROPATHY PERIPHERAL [None]
  - MEDICATION RESIDUE [None]
